FAERS Safety Report 9241177 (Version 1)
Quarter: 2013Q2

REPORT INFORMATION
  Report Type: Spontaneous
  Country: CR (occurrence: CR)
  Receive Date: 20130419
  Receipt Date: 20130419
  Transmission Date: 20140414
  Serious: Yes (Other)
  Sender: FDA-Public Use
  Company Number: CR-JNJFOC-20130405580

PATIENT
  Sex: 0

DRUGS (2)
  1. REMICADE [Suspect]
     Indication: AGE-RELATED MACULAR DEGENERATION
     Dosage: 0.05ML
     Route: 050
     Dates: start: 200903, end: 200905
  2. REMICADE [Suspect]
     Indication: AGE-RELATED MACULAR DEGENERATION
     Dosage: 0.1ML
     Route: 050
     Dates: start: 200903, end: 200905

REACTIONS (3)
  - Uveitis [Recovered/Resolved]
  - Corneal deposits [Unknown]
  - Off label use [Unknown]
